FAERS Safety Report 9100439 (Version 1)
Quarter: 2013Q1

REPORT INFORMATION
  Report Type: Spontaneous
  Country: FR (occurrence: FR)
  Receive Date: 20130215
  Receipt Date: 20130215
  Transmission Date: 20140127
  Serious: Yes (Hospitalization)
  Sender: FDA-Public Use
  Company Number: FR-PFIZER INC-2013057251

PATIENT
  Age: 45 Year
  Sex: Female

DRUGS (2)
  1. ALDACTONE [Suspect]
     Dosage: 25 MG, 3X/DAY
     Route: 048
  2. MERCILON [Suspect]
     Dosage: 1 DF, 1X/DAY
     Route: 048
     Dates: start: 2003, end: 20130107

REACTIONS (2)
  - Phlebitis [Not Recovered/Not Resolved]
  - Pulmonary embolism [Not Recovered/Not Resolved]
